FAERS Safety Report 7271863-X (Version None)
Quarter: 2011Q1

REPORT INFORMATION
  Report Type: 
  Country: None (occurrence: None)
  Receive Date: 20110131
  Receipt Date: 20110131
  Transmission Date: 20110831
  Serious: Yes (Hospitalization)
  Sender: FDA-Public Use
  Company Number: None

PATIENT
  Sex: Female
  Weight: 84.0969 kg

DRUGS (4)
  1. RADIATION [Suspect]
     Dosage: RADIATION DAILY
     Dates: start: 20110110, end: 20110117
  2. CARBOPLATIN [Suspect]
     Indication: LUNG NEOPLASM MALIGNANT
     Dosage: CARBOPLATIN WEEKLY IV
     Route: 042
     Dates: start: 20110110
  3. DASATINIB [Suspect]
     Dosage: DASATINIB DAILY PO
     Route: 048
     Dates: start: 20110110, end: 20110117
  4. TAXOL [Suspect]
     Indication: LUNG NEOPLASM MALIGNANT
     Dosage: TAXOL WEEKLY IV
     Route: 042
     Dates: start: 20110110

REACTIONS (3)
  - NIGHT SWEATS [None]
  - PNEUMONIA NECROTISING [None]
  - PULMONARY CAVITATION [None]
